FAERS Safety Report 14371465 (Version 1)
Quarter: 2018Q1

REPORT INFORMATION
  Report Type: Spontaneous
  Country: US (occurrence: US)
  Receive Date: 20180110
  Receipt Date: 20180110
  Transmission Date: 20180509
  Serious: Yes (Other)
  Sender: FDA-Public Use
  Company Number: US-TORRENT-00005657

PATIENT
  Sex: Female

DRUGS (1)
  1. LAMOTRIGINE. [Suspect]
     Active Substance: LAMOTRIGINE
     Indication: DEPRESSION
     Route: 048

REACTIONS (10)
  - Off label use [Unknown]
  - Disturbance in attention [Unknown]
  - Product substitution issue [Unknown]
  - Headache [Unknown]
  - Feeling abnormal [Unknown]
  - Muscle twitching [Unknown]
  - Allergic reaction to excipient [Unknown]
  - Poor quality sleep [Unknown]
  - Nausea [Unknown]
  - Mental disorder [Unknown]
